FAERS Safety Report 15266207 (Version 1)
Quarter: 2018Q3

REPORT INFORMATION
  Report Type: Spontaneous
  Country: US (occurrence: US)
  Receive Date: 20180724
  Receipt Date: 20180724
  Transmission Date: 20181010
  Serious: Yes (Hospitalization)
  Sender: FDA-Public Use
  Company Number: None

PATIENT
  Sex: Female

DRUGS (7)
  1. BUMETANIDE, GABAPENTIN [Concomitant]
  2. OMEPRAZOLE, POT CHLORIDE [Concomitant]
  3. PRAVASTATIN, SYMBICORT [Concomitant]
  4. SILDENAFIL. [Suspect]
     Active Substance: SILDENAFIL
     Indication: PULMONARY ARTERIAL HYPERTENSION
     Dosage: ?          OTHER FREQUENCY:Q 8 HOURS;?
     Route: 048
     Dates: start: 20170301
  5. ALLOPURINOL, AMIODARONE [Concomitant]
  6. METOPROL, METOLAZONE [Concomitant]
  7. WARFARIN [Concomitant]
     Active Substance: WARFARIN

REACTIONS (2)
  - Pulmonary arterial hypertension [None]
  - Condition aggravated [None]
